FAERS Safety Report 17885761 (Version 1)
Quarter: 2020Q2

REPORT INFORMATION
  Report Type: Spontaneous
  Country: IT (occurrence: IT)
  Receive Date: 20200611
  Receipt Date: 20200611
  Transmission Date: 20200714
  Serious: Yes (Other)
  Sender: FDA-Public Use
  Company Number: IT-JNJFOC-20200605803

PATIENT
  Age: 68 Year
  Sex: Female
  Weight: 90 kg

DRUGS (2)
  1. HALDOL [Suspect]
     Active Substance: HALOPERIDOL
     Indication: PRODUCT USED FOR UNKNOWN INDICATION
     Route: 048
     Dates: start: 20200602
  2. ANSIOLIN [Suspect]
     Active Substance: DIAZEPAM
     Indication: PRODUCT USED FOR UNKNOWN INDICATION
     Route: 048
     Dates: start: 20200602

REACTIONS (4)
  - Intentional product misuse [Unknown]
  - Intentional self-injury [Unknown]
  - Sopor [Unknown]
  - Sluggishness [Unknown]

NARRATIVE: CASE EVENT DATE: 20200602
